FAERS Safety Report 4891954-8 (Version None)
Quarter: 2006Q1

REPORT INFORMATION
  Report Type: 
  Country: None (occurrence: None)
  Receive Date: 20060123
  Receipt Date: 20060110
  Transmission Date: 20060701
  Serious: Yes (Hospitalization, Other)
  Sender: FDA-Public Use
  Company Number: DE_051017344

PATIENT
  Age: 62 Year
  Sex: Female

DRUGS (2)
  1. GEMZAR [Suspect]
     Indication: BREAST CANCER
     Dosage: 1000 MG, INTRAVENOUS
     Route: 042
     Dates: start: 20050101, end: 20051001
  2. ZOMETA [Concomitant]

REACTIONS (7)
  - COORDINATION ABNORMAL [None]
  - DIPLOPIA [None]
  - DIZZINESS [None]
  - DRUG TOXICITY [None]
  - POLYNEUROPATHY [None]
  - VITH NERVE PARALYSIS [None]
  - WHITE BLOOD CELL COUNT DECREASED [None]
